FAERS Safety Report 25128084 (Version 4)
Quarter: 2025Q4

REPORT INFORMATION
  Report Type: Spontaneous
  Country: US (occurrence: US)
  Receive Date: 20250327
  Receipt Date: 20251120
  Transmission Date: 20260117
  Serious: Yes (Other)
  Sender: ASTELLAS
  Company Number: US-ASTELLAS-2025-AER-015629

PATIENT
  Age: 50 Year
  Sex: Female

DRUGS (1)
  1. VEOZAH [Suspect]
     Active Substance: FEZOLINETANT
     Indication: Menopausal symptoms
     Route: 048
     Dates: start: 202412, end: 202503

REACTIONS (3)
  - Neoplasm recurrence [Recovered/Resolved]
  - Phyllodes tumour [Recovered/Resolved]
  - Breast neoplasm [Recovering/Resolving]

NARRATIVE: CASE EVENT DATE: 20250201
